FAERS Safety Report 21976815 (Version 1)
Quarter: 2023Q1

REPORT INFORMATION
  Report Type: Report from Study
  Country: US (occurrence: None)
  Receive Date: 20230210
  Receipt Date: 20230210
  Transmission Date: 20230418
  Serious: Yes (Death)
  Sender: FDA-Public Use
  Company Number: 2023A033642

PATIENT
  Age: 29243 Day
  Sex: Female
  Weight: 43.5 kg

DRUGS (1)
  1. TAGRISSO [Suspect]
     Active Substance: OSIMERTINIB
     Indication: Lung neoplasm malignant
     Route: 048
     Dates: start: 20230113

REACTIONS (1)
  - Death [Fatal]

NARRATIVE: CASE EVENT DATE: 20230206
